FAERS Safety Report 5259972-8 (Version None)
Quarter: 2007Q1

REPORT INFORMATION
  Report Type: 
  Country: None (occurrence: None)
  Receive Date: 20070309
  Receipt Date: 20070228
  Transmission Date: 20070707
  Serious: Yes (Hospitalization, Disabling)
  Sender: FDA-Public Use
  Company Number: 2006UW27830

PATIENT
  Age: 35 Year
  Sex: Female
  Weight: 150 kg

DRUGS (3)
  1. SEROQUEL [Suspect]
     Indication: SLEEP DISORDER
     Route: 048
     Dates: start: 20030101, end: 20060301
  2. CYMBALTA [Concomitant]
  3. XANAX [Concomitant]

REACTIONS (3)
  - DIABETES MELLITUS [None]
  - INFECTION [None]
  - SUPRAVENTRICULAR TACHYCARDIA [None]
